FAERS Safety Report 4972972-8 (Version None)
Quarter: 2006Q2

REPORT INFORMATION
  Report Type: 
  Country: None (occurrence: None)
  Receive Date: 20060414
  Receipt Date: 20060213
  Transmission Date: 20061013
  Serious: Yes (Life-Threatening, Hospitalization, Other)
  Sender: FDA-Public Use
  Company Number: AR-GLAXOSMITHKLINE-A0593511A

PATIENT
  Age: 24 Year
  Sex: Female
  Weight: 69 kg

DRUGS (3)
  1. LAMICTAL [Suspect]
     Indication: BIPOLAR DISORDER
     Dosage: 200Z PER DAY
     Route: 048
     Dates: start: 20031117, end: 20060209
  2. CLONAZEPAM [Suspect]
     Dosage: 1.5MG PER DAY
     Route: 048
  3. LEVO-TIROXINA [Concomitant]
     Indication: HYPOTHYROIDISM
     Dosage: 150MCG PER DAY

REACTIONS (5)
  - ANAPHYLACTIC REACTION [None]
  - BLISTER [None]
  - HYPERSENSITIVITY [None]
  - LARYNGEAL OEDEMA [None]
  - RASH GENERALISED [None]
